FAERS Safety Report 16893802 (Version 1)
Quarter: 2019Q4

REPORT INFORMATION
  Report Type: Spontaneous
  Country: ES (occurrence: ES)
  Receive Date: 20191008
  Receipt Date: 20191008
  Transmission Date: 20200122
  Serious: Yes (Hospitalization)
  Sender: FDA-Public Use
  Company Number: ES-PFIZER INC-2019429812

PATIENT
  Age: 72 Year
  Sex: Male

DRUGS (7)
  1. PROPOFOL. [Suspect]
     Active Substance: PROPOFOL
     Indication: SEDATION
     Dosage: 10 MILLILITER, Q1HR
     Route: 042
     Dates: start: 20091003, end: 20091008
  2. METOCLOPRAMIDA [METOCLOPRAMIDE HYDROCHLORIDE] [Concomitant]
     Indication: VOMITING
     Dosage: 10 MILLIGRAM, Q8HR
     Route: 042
     Dates: start: 20091008
  3. PANTOPRAZOLE [Suspect]
     Active Substance: PANTOPRAZOLE
     Indication: PROPHYLAXIS
     Dosage: 40 MILLIGRAM, QD
     Route: 042
     Dates: start: 20091003, end: 20091022
  4. FENITOINA [PHENYTOIN] [Suspect]
     Active Substance: PHENYTOIN
     Indication: PROPHYLAXIS
     Dosage: 150 MILLIGRAM, Q8HR
     Route: 042
     Dates: start: 20091005, end: 20091017
  5. MIDAZOLAM [Concomitant]
     Active Substance: MIDAZOLAM HYDROCHLORIDE
     Indication: SEDATION
     Dosage: UNK
     Route: 042
     Dates: start: 20091003, end: 20091006
  6. CEFOTAXIMA [CEFOTAXIME SODIUM] [Suspect]
     Active Substance: CEFOTAXIME SODIUM
     Indication: PNEUMONIA
     Dosage: 1 GRAM, Q8HR
     Route: 042
     Dates: start: 20091003, end: 20091008
  7. FENTANILO [FENTANYL] [Concomitant]
     Indication: ANALGESIC THERAPY
     Dosage: UNK
     Route: 042
     Dates: start: 20091006, end: 20091012

REACTIONS (1)
  - Hepatitis [Recovered/Resolved]

NARRATIVE: CASE EVENT DATE: 20091009
